FAERS Safety Report 4547982-5 (Version None)
Quarter: 2004Q4

REPORT INFORMATION
  Report Type: 
  Country: None (occurrence: None)
  Receive Date: 20041220
  Receipt Date: 20041015
  Transmission Date: 20050328
  Serious: Yes (Hospitalization)
  Sender: FDA-Public Use
  Company Number: USA041081356

PATIENT
  Age: 63 Year
  Sex: Female
  Weight: 102 kg

DRUGS (2)
  1. HUMULIN R [Suspect]
     Dates: start: 19870101, end: 20030101
  2. GLIPIZIDE [Concomitant]

REACTIONS (3)
  - BLOOD GLUCOSE INCREASED [None]
  - HYPERTENSION [None]
  - HYPOAESTHESIA [None]
